FAERS Safety Report 21813150 (Version 5)
Quarter: 2023Q1

REPORT INFORMATION
  Report Type: Spontaneous
  Country: US (occurrence: US)
  Receive Date: 20230103
  Receipt Date: 20230320
  Transmission Date: 20230418
  Serious: No
  Sender: FDA-Public Use
  Company Number: US-PFIZER INC-PV202200133650

PATIENT
  Age: 33 Year
  Sex: Female

DRUGS (5)
  1. SOMAVERT [Suspect]
     Active Substance: PEGVISOMANT
     Indication: Acromegaly
     Dosage: 10 MG, DAILY
     Route: 058
     Dates: start: 20220920
  2. SOMAVERT [Suspect]
     Active Substance: PEGVISOMANT
     Indication: Gigantism
     Dosage: 15 MG, DAILY
     Route: 058
     Dates: start: 20230110
  3. LIDOCAINE 5% EXTRA [Concomitant]
     Dosage: UNK
  4. LANREOTIDE [Concomitant]
     Active Substance: LANREOTIDE
     Dosage: (120 MG/0.5ML SYR)
  5. LANREOTIDE [Concomitant]
     Active Substance: LANREOTIDE
     Dosage: 120/0.5 ML

REACTIONS (5)
  - Fat tissue increased [Not Recovered/Not Resolved]
  - Joint swelling [Recovered/Resolved]
  - Injection site scar [Not Recovered/Not Resolved]
  - Therapeutic product effect incomplete [Recovering/Resolving]
  - Hepatic enzyme increased [Not Recovered/Not Resolved]

NARRATIVE: CASE EVENT DATE: 20220101
